FAERS Safety Report 24717123 (Version 2)
Quarter: 2025Q3

REPORT INFORMATION
  Report Type: Spontaneous
  Country: JP (occurrence: JP)
  Receive Date: 20241210
  Receipt Date: 20250803
  Transmission Date: 20251020
  Serious: Yes (Other)
  Sender: ALEXION PHARMACEUTICALS
  Company Number: JP-ASTRAZENECA-240136843_013120_P_1

PATIENT
  Age: 65 Year
  Sex: Female

DRUGS (3)
  1. DURVALUMAB [Suspect]
     Active Substance: DURVALUMAB
     Indication: Bile duct cancer
     Dosage: 1500 MILLIGRAM, Q3H
  2. GEMCITABINE [Suspect]
     Active Substance: GEMCITABINE
     Indication: Bile duct cancer
     Dosage: 1000 MILLIGRAM/SQ. METER, Q3W
  3. CISPLATIN [Suspect]
     Active Substance: CISPLATIN
     Indication: Bile duct cancer
     Dosage: 25 MILLIGRAM/SQ. METER, Q3W

REACTIONS (1)
  - Myelosuppression [Unknown]
